FAERS Safety Report 23982537 (Version 1)
Quarter: 2024Q2

REPORT INFORMATION
  Report Type: Spontaneous
  Country: US (occurrence: US)
  Receive Date: 20240617
  Receipt Date: 20240617
  Transmission Date: 20240716
  Serious: Yes (Other)
  Sender: FDA-Public Use
  Company Number: US-GLAXOSMITHKLINE-US2024071697

PATIENT

DRUGS (1)
  1. ANORO ELLIPTA [Suspect]
     Active Substance: UMECLIDINIUM BROMIDE\VILANTEROL TRIFENATATE
     Indication: Dyspnoea
     Dosage: UNK
     Dates: start: 20240608, end: 20240609

REACTIONS (22)
  - Chronic kidney disease [Unknown]
  - Arterial therapeutic procedure [Unknown]
  - Coronary artery bypass [Unknown]
  - Chest pain [Unknown]
  - Oropharyngeal pain [Not Recovered/Not Resolved]
  - Hypertension [Unknown]
  - Peripheral artery aneurysm [Unknown]
  - Hyperlipidaemia [Unknown]
  - Emphysema [Unknown]
  - Sleep apnoea syndrome [Unknown]
  - Supraventricular tachycardia [Unknown]
  - Chronic left ventricular failure [Unknown]
  - Dyspnoea exertional [Unknown]
  - Influenza [Unknown]
  - Headache [Unknown]
  - Neck pain [Unknown]
  - Arthralgia [Unknown]
  - Pain in extremity [Unknown]
  - Musculoskeletal stiffness [Unknown]
  - Palpitations [Unknown]
  - Nausea [Unknown]
  - Dizziness [Unknown]

NARRATIVE: CASE EVENT DATE: 20040311
